FAERS Safety Report 4674471-X (Version None)
Quarter: 2005Q2

REPORT INFORMATION
  Report Type: 
  Country: None (occurrence: None)
  Receive Date: 20050526
  Receipt Date: 20050513
  Transmission Date: 20051028
  Serious: Yes (Death)
  Sender: FDA-Public Use
  Company Number: AT-JNJFOC-20050503122

PATIENT
  Age: 76 Year
  Sex: Female

DRUGS (10)
  1. TRAMADOL HCL [Suspect]
     Indication: DRUG USE FOR UNKNOWN INDICATION
     Route: 065
  2. DOMINAL FORTE [Interacting]
     Indication: DRUG USE FOR UNKNOWN INDICATION
     Route: 065
  3. REMERON [Interacting]
     Route: 065
  4. REMERON [Interacting]
     Indication: DEMENTIA
     Route: 065
  5. CONVULEX [Concomitant]
     Route: 065
  6. GUTTALAX [Concomitant]
     Route: 065
  7. INDERAL [Concomitant]
     Route: 065
  8. MARCOUMAR [Concomitant]
     Route: 065
  9. OXAZEPAM [Concomitant]
     Route: 065
  10. ZOCORD [Concomitant]
     Route: 065

REACTIONS (2)
  - DRUG INTERACTION [None]
  - THERAPEUTIC AGENT TOXICITY [None]
